FAERS Safety Report 9774447 (Version 1)
Quarter: 2013Q4

REPORT INFORMATION
  Report Type: Spontaneous
  Country: US (occurrence: US)
  Receive Date: 20131220
  Receipt Date: 20131220
  Transmission Date: 20140711
  Serious: Yes (Other)
  Sender: FDA-Public Use
  Company Number: US-UCBSA-105981

PATIENT
  Age: 21 Year
  Sex: Female

DRUGS (2)
  1. LEVETIRACETAM [Suspect]
     Dosage: UNKNOWN DOSE
  2. PHENYTOIN [Suspect]
     Dosage: UNKNOWN DOSE

REACTIONS (1)
  - Convulsion [Unknown]
